FAERS Safety Report 17328796 (Version 1)
Quarter: 2020Q1

REPORT INFORMATION
  Report Type: Spontaneous
  Country: FR (occurrence: FR)
  Receive Date: 20200127
  Receipt Date: 20200127
  Transmission Date: 20200409
  Serious: Yes (Other)
  Sender: FDA-Public Use
  Company Number: NVSC2020FR014285

PATIENT
  Age: 34 Year
  Sex: Male

DRUGS (5)
  1. AUGMENTIN [Suspect]
     Active Substance: AMOXICILLIN\CLAVULANATE POTASSIUM
     Indication: INFECTION
     Dosage: UNK (NON RENSEIGNEE)
     Route: 065
     Dates: start: 20191007, end: 20191011
  2. FORTUM [Suspect]
     Active Substance: CEFTAZIDIME
     Indication: INFECTION
     Dosage: UNK (NON RENSEIGNEE)
     Route: 042
     Dates: start: 20191015
  3. PIPERACILLIN. [Suspect]
     Active Substance: PIPERACILLIN SODIUM
     Indication: INFECTION
     Dosage: UNK (NON RENSEIGNEE)
     Route: 042
     Dates: start: 20191011, end: 20191015
  4. ZARZIO [Suspect]
     Active Substance: FILGRASTIM
     Indication: PRODUCT USED FOR UNKNOWN INDICATION
     Dosage: UNK (NON RENSEIGNEE)
     Route: 058
     Dates: start: 20191011
  5. TAZOBACTAM [Suspect]
     Active Substance: TAZOBACTAM
     Indication: INFECTION
     Dosage: UNK (NON RENSEIGNEE)
     Route: 042
     Dates: start: 20191011, end: 20191015

REACTIONS (2)
  - Pruritus [Not Recovered/Not Resolved]
  - Rash maculo-papular [Not Recovered/Not Resolved]

NARRATIVE: CASE EVENT DATE: 20191013
